FAERS Safety Report 26059570 (Version 1)
Quarter: 2025Q4

REPORT INFORMATION
  Report Type: Spontaneous
  Country: US (occurrence: None)
  Receive Date: 20251118
  Receipt Date: 20251118
  Transmission Date: 20260118
  Serious: Yes (Death)
  Sender: FDA-CTU
  Company Number: None

PATIENT
  Age: 73 Year
  Sex: Male
  Weight: 68.27 kg

DRUGS (4)
  1. DEXAMETHASONE [Suspect]
     Active Substance: DEXAMETHASONE
     Dates: end: 20250724
  2. LENALIDOMIDE [Suspect]
     Active Substance: LENALIDOMIDE
     Dates: end: 20250730
  3. VELCADE [Suspect]
     Active Substance: BORTEZOMIB
     Dates: end: 20250724
  4. AMIODARONE HCL (PACERONE) [Concomitant]

REACTIONS (2)
  - Pneumonia [None]
  - Plasma cell myeloma [None]

NARRATIVE: CASE EVENT DATE: 20250826
